FAERS Safety Report 8592889 (Version 3)
Quarter: 2013Q2

REPORT INFORMATION
  Report Type: Spontaneous
  Country: US (occurrence: US)
  Receive Date: 20120604
  Receipt Date: 20130617
  Transmission Date: 20140414
  Serious: Yes (Hospitalization, Disabling)
  Sender: FDA-Public Use
  Company Number: US-ASTRAZENECA-2012SE34795

PATIENT
  Age: 39 Year
  Sex: Female
  Weight: 54.4 kg

DRUGS (30)
  1. NEXIUM [Suspect]
     Indication: GASTROOESOPHAGEAL REFLUX DISEASE
     Dosage: TWO TIMES A DAY
     Route: 048
     Dates: end: 201303
  2. NEXIUM [Suspect]
     Indication: ULCER
     Dosage: TWO TIMES A DAY
     Route: 048
     Dates: end: 201303
  3. PRILOSEC [Suspect]
     Route: 048
  4. PRILOSEC OTC [Suspect]
     Route: 048
     Dates: start: 20091230
  5. RANITIDINE [Concomitant]
     Dates: start: 20090417
  6. BENADRYL [Concomitant]
  7. ROLAIDS [Concomitant]
  8. MYLANTA [Concomitant]
  9. GEODON [Concomitant]
     Dates: start: 20090411
  10. PAXIL [Concomitant]
     Dates: start: 20090411
  11. GLYBURIDE [Concomitant]
     Indication: DIABETES MELLITUS
     Route: 048
     Dates: start: 20090416
  12. LYRICA [Concomitant]
     Dates: start: 20090307
  13. HYDROC/APAP [Concomitant]
     Dosage: 5/500 MG
     Dates: start: 20090326
  14. ENALAPRIL MALEATE [Concomitant]
     Dates: start: 20090416
  15. SIMVASTATIN [Concomitant]
     Dates: start: 20090416
  16. ACTOS [Concomitant]
     Dates: start: 20090421
  17. TRAZODONE [Concomitant]
     Dates: start: 20120302
  18. MIRTAZAPINE [Concomitant]
     Dates: start: 20120118
  19. HYDROXYZINE PAM [Concomitant]
     Dates: start: 20090421
  20. CYCLOBENZAPRINE [Concomitant]
     Dates: start: 20120202
  21. PREDNISONE [Concomitant]
     Dates: start: 20120224
  22. METHOCARBAMOL [Concomitant]
     Dates: start: 20111222
  23. JANUVIA [Concomitant]
     Dates: start: 20110112
  24. DICYCLOMINE [Concomitant]
     Dates: start: 20110310
  25. LOVAZA [Concomitant]
     Dates: start: 20110310
  26. ALBUTEROL HFA [Concomitant]
     Dates: start: 20110310
  27. METOCLOPRAMIDE [Concomitant]
     Dates: start: 20100604
  28. SUCRALFATE [Concomitant]
     Dates: start: 20100428
  29. PROMETHAZINE [Concomitant]
     Dates: start: 20100524
  30. PROPOXY-N/APP [Concomitant]
     Dates: start: 20100524

REACTIONS (9)
  - Carpal tunnel syndrome [Unknown]
  - Gallbladder disorder [Unknown]
  - Osteoporosis [Unknown]
  - Bone density decreased [Unknown]
  - Multiple fractures [Unknown]
  - Back pain [Unknown]
  - Fibromyalgia [Unknown]
  - Cataract [Unknown]
  - Intervertebral disc protrusion [Unknown]
